FAERS Safety Report 8764732 (Version 3)
Quarter: 2014Q1

REPORT INFORMATION
  Report Type: Spontaneous
  Country: PT (occurrence: PT)
  Receive Date: 20120831
  Receipt Date: 20140320
  Transmission Date: 20141002
  Serious: Yes (Hospitalization, Other)
  Sender: FDA-Public Use
  Company Number: PT-009507513-1107PRT00010B1

PATIENT
  Age: 0 Day
  Sex: Male
  Weight: 3.65 kg

DRUGS (5)
  1. ISENTRESS [Suspect]
     Indication: HIV INFECTION
     Dosage: 400 MG, BID
     Route: 064
     Dates: start: 20110214
  2. NORVIR [Suspect]
     Route: 064
     Dates: start: 20110214
  3. PREZISTA [Suspect]
     Dosage: 600 MG, BID
     Route: 064
     Dates: start: 20110214
  4. TRUVADA [Suspect]
     Route: 064
     Dates: start: 20110214
  5. ZIDOVUDINE [Concomitant]
     Dosage: UNK
     Route: 064
     Dates: start: 20110725, end: 20110725

REACTIONS (3)
  - Pneumonia [Recovered/Resolved]
  - Respiratory distress [Recovered/Resolved]
  - Foetal exposure during pregnancy [Recovered/Resolved]
